FAERS Safety Report 9338053 (Version 2)
Quarter: 2013Q4

REPORT INFORMATION
  Report Type: Report from Study
  Country: GB (occurrence: GB)
  Receive Date: 20130610
  Receipt Date: 20131118
  Transmission Date: 20140711
  Serious: Yes (Death, Other)
  Sender: FDA-Public Use
  Company Number: GB-AMGEN-GBRCT2013040332

PATIENT
  Age: 72 Year
  Sex: Female

DRUGS (16)
  1. ETANERCEPT [Suspect]
     Indication: RHEUMATOID ARTHRITIS
     Dosage: 25 MG, 2 TIMES/WK
     Route: 065
     Dates: start: 20030715, end: 20071231
  2. AZATHIOPRINE [Concomitant]
     Dosage: 100 MG, 1X/DAY
     Dates: start: 20080903
  3. AZATHIOPRINE [Concomitant]
     Dosage: 100 MG, 1X/DAY
  4. FRUSEMIDE                          /00032601/ [Concomitant]
     Dosage: 40 MG, 3X/DAY
     Route: 048
  5. FRUSEMIDE                          /00032601/ [Concomitant]
     Dosage: 80 MG, 1X/DAY
     Route: 048
  6. FRUSEMIDE                          /00032601/ [Concomitant]
     Dosage: 120 MG, 1X/DAY
     Route: 048
  7. MIRCERA [Concomitant]
     Dosage: 200 UG, MONTHLY
     Route: 058
  8. ALFACALCIDOL [Concomitant]
     Dosage: 0.5 UG, 1X/DAY
     Route: 048
  9. ALFACALCIDOL [Concomitant]
     Dosage: 0.5 MG, 1X/DAY
     Route: 048
  10. PREDNISOLONE [Concomitant]
     Dosage: 7.5 MG, 1X/DAY
     Route: 048
  11. BISOPROLOL [Concomitant]
     Dosage: 7.5 MG, 1X/DAY
     Route: 048
  12. MIXTARD                            /00806401/ [Concomitant]
     Dosage: UNK
     Route: 058
  13. ATORVASTATIN [Concomitant]
     Dosage: 10 MG, 1X/DAY
     Route: 048
  14. AMITRIPTYLINE [Concomitant]
     Dosage: 10 MG, 1X/DAY
     Route: 048
  15. OMEPRAZOLE [Concomitant]
     Dosage: 20 MG, 1X/DAY
     Route: 048
  16. DIALYVITE [Concomitant]
     Dosage: UNK
     Route: 048

REACTIONS (2)
  - Anal squamous cell carcinoma [Fatal]
  - Anal cancer metastatic [Fatal]
